FAERS Safety Report 10177702 (Version 4)
Quarter: 2017Q2

REPORT INFORMATION
  Report Type: Spontaneous
  Country: US (occurrence: US)
  Receive Date: 20140516
  Receipt Date: 20170512
  Transmission Date: 20170829
  Serious: No
  Sender: FDA-Public Use
  Company Number: US-SA-2014SA022939

PATIENT
  Age: 59 Year
  Sex: Female

DRUGS (14)
  1. SOLOSTAR [Suspect]
     Active Substance: DEVICE
     Indication: TYPE 2 DIABETES MELLITUS
  2. APIDRA SOLOSTAR [Suspect]
     Active Substance: INSULIN GLULISINE
     Indication: TYPE 2 DIABETES MELLITUS
     Dosage: DOSE:SLIDING DOSE OF 10-50, TAKEN UPTO 80 UNITS
     Route: 065
     Dates: start: 2014
  3. SOLOSTAR [Suspect]
     Active Substance: DEVICE
     Indication: TYPE 2 DIABETES MELLITUS
     Route: 065
  4. SOLOSTAR [Suspect]
     Active Substance: DEVICE
     Indication: TYPE 2 DIABETES MELLITUS
     Dosage: DOSE:SLIDING DOSE OF 10-50, TAKEN UPTO 80 UNITS
     Dates: start: 2014
  5. APIDRA SOLOSTAR [Suspect]
     Active Substance: INSULIN GLULISINE
     Indication: TYPE 2 DIABETES MELLITUS
     Dosage: DOSE:80 UNIT(S)
     Route: 065
  6. SOLOSTAR [Suspect]
     Active Substance: DEVICE
     Indication: TYPE 2 DIABETES MELLITUS
     Dates: start: 2005
  7. LANTUS [Suspect]
     Active Substance: INSULIN GLARGINE
     Indication: TYPE 2 DIABETES MELLITUS
     Dosage: TAKEN FROM: ABOUT 1 YEAR AGO DOSE:30 UNIT(S)
     Route: 051
  8. RISPERDAL [Concomitant]
     Active Substance: RISPERIDONE
  9. SOLOSTAR [Suspect]
     Active Substance: DEVICE
     Indication: TYPE 2 DIABETES MELLITUS
  10. APIDRA SOLOSTAR [Suspect]
     Active Substance: INSULIN GLULISINE
     Indication: TYPE 2 DIABETES MELLITUS
     Dosage: DOSE:30 UNIT(S)
     Route: 065
  11. APIDRA SOLOSTAR [Suspect]
     Active Substance: INSULIN GLULISINE
     Indication: TYPE 2 DIABETES MELLITUS
     Dosage: DOSE:6 UNIT(S)
     Route: 065
     Dates: start: 2005
  12. APIDRA SOLOSTAR [Suspect]
     Active Substance: INSULIN GLULISINE
     Indication: TYPE 2 DIABETES MELLITUS
     Dosage: 25-30 UNITS?7-8 TIMES A DAY
     Route: 065
  13. SOLOSTAR [Suspect]
     Active Substance: DEVICE
     Indication: TYPE 2 DIABETES MELLITUS
     Dosage: 25-30 UNITS?7-8 TIMES A DAY
  14. APIDRA SOLOSTAR [Suspect]
     Active Substance: INSULIN GLULISINE
     Indication: TYPE 2 DIABETES MELLITUS
     Dosage: 40-50 UNITS AND 6-7 TIMES DAILY
     Route: 065

REACTIONS (20)
  - Gait disturbance [Unknown]
  - Vision blurred [Unknown]
  - Irritability [Unknown]
  - Joint swelling [Unknown]
  - Weight increased [Unknown]
  - Asthenia [Unknown]
  - Dyspnoea [Unknown]
  - Wrong drug administered [Unknown]
  - Intentional product misuse [Unknown]
  - Wheezing [Unknown]
  - Blood glucose increased [Recovered/Resolved]
  - Glycosylated haemoglobin increased [Unknown]
  - Hunger [Unknown]
  - Arthralgia [Unknown]
  - Blood glucose decreased [Unknown]
  - Joint stiffness [Unknown]
  - Restless legs syndrome [Unknown]
  - Mood altered [Unknown]
  - Tremor [Unknown]
  - Drug administration error [Unknown]

NARRATIVE: CASE EVENT DATE: 2015
